FAERS Safety Report 19001592 (Version 1)
Quarter: 2021Q1

REPORT INFORMATION
  Report Type: Spontaneous
  Country: US (occurrence: US)
  Receive Date: 20210312
  Receipt Date: 20210312
  Transmission Date: 20210420
  Serious: No
  Sender: FDA-Public Use
  Company Number: US-FARMAPROD-202010-1435

PATIENT
  Sex: Female
  Weight: 81.27 kg

DRUGS (8)
  1. ASPIRINE [Concomitant]
     Active Substance: ASPIRIN
  2. ORENCIA [Concomitant]
     Active Substance: ABATACEPT
  3. RECLAST [Concomitant]
     Active Substance: ZOLEDRONIC ACID
     Dosage: 5 MG/100 ML
     Route: 042
  4. PILOCARPINE HCL [Concomitant]
     Active Substance: PILOCARPINE HYDROCHLORIDE
  5. PLAQUENIL [Concomitant]
     Active Substance: HYDROXYCHLOROQUINE SULFATE
  6. KEPPRA [Concomitant]
     Active Substance: LEVETIRACETAM
  7. OXERVATE [Suspect]
     Active Substance: CENEGERMIN-BKBJ
     Indication: DRY EYE
  8. OXERVATE [Suspect]
     Active Substance: CENEGERMIN-BKBJ
     Indication: NEUROTROPHIC KERATOPATHY
     Route: 047
     Dates: start: 20201019

REACTIONS (1)
  - Eye pain [Unknown]
